FAERS Safety Report 9189894 (Version 3)
Quarter: 2013Q4

REPORT INFORMATION
  Report Type: Spontaneous
  Country: GB (occurrence: None)
  Receive Date: 20130322
  Receipt Date: 20131203
  Transmission Date: 20140711
  Serious: Yes (Hospitalization)
  Sender: FDA-Public Use
  Company Number: SYM-2013-01784

PATIENT
  Age: 66 Year
  Sex: Male

DRUGS (14)
  1. 5-FU [Suspect]
     Route: 040
     Dates: start: 20121025, end: 20121025
  2. AFLIBERCEPT [Suspect]
     Dosage: 4 MGKG, EVERY OTHER WEEK, INTRAVENOUS (NOT OTHERWISE SPECIFIED)
     Route: 042
     Dates: start: 20121025, end: 20121025
  3. IRINOTECAN [Suspect]
     Route: 042
     Dates: start: 20121025, end: 20121025
  4. LEUCOVORIN (FOLINIC ACID) (SOLUTION FOR INFUSION) (FOLINIC ACID) [Suspect]
     Dosage: EVERY OTHER WEEK, INTRAVENOUS (NOT OTHERWISE SPECIFIED)
     Route: 042
     Dates: start: 20121025, end: 20121025
  5. LORATADINE [Concomitant]
  6. QVAR (BECLOMETASONE DIPROPIONATE) (BECLOMETASONE) [Concomitant]
  7. LISINOPRIL (LISINOPRIL) (LISINOPRIL) [Concomitant]
  8. DEXAMETHASONE (DEXAMETHASONE) (DEXAMETHASONE) [Concomitant]
  9. MORPHINE SULFATE (MORPHINE SULFATE) (MORPHINE SULFATE) [Concomitant]
  10. BENDROFLUMETHIAZIDE (BENDROFLUMETHIAZIDE) (BENDROFLUMETHIAZIDE) [Concomitant]
  11. ROSUVASTATIN (ROSUVASTATIN) (ROSUVASTATIN) [Concomitant]
  12. SALBUTAMOL (SALBUTAMOL) (SALBUTAMOL) [Concomitant]
  13. CO-DANTHRAMER (DORBANEX/00161701/) (DANTRON, POLOXAMER) [Concomitant]
  14. TOLTERODINE (TOLTERODINE) (TOLTERODINE) [Concomitant]

REACTIONS (4)
  - Diarrhoea [None]
  - Cellulitis [None]
  - Colorectal cancer metastatic [None]
  - Malignant neoplasm progression [None]
